FAERS Safety Report 15711216 (Version 2)
Quarter: 2019Q1

REPORT INFORMATION
  Report Type: Spontaneous
  Country: US (occurrence: US)
  Receive Date: 20181211
  Receipt Date: 20190104
  Transmission Date: 20190417
  Serious: No
  Sender: FDA-Public Use
  Company Number: US-GILEAD-2018-0379218

PATIENT
  Age: 53 Year
  Sex: Male
  Weight: 77.1 kg

DRUGS (3)
  1. COBICISTAT [Concomitant]
     Active Substance: COBICISTAT
  2. BIKTARVY [Suspect]
     Active Substance: BICTEGRAVIR SODIUM\EMTRICITABINE\TENOFOVIR ALAFENAMIDE FUMARATE
     Indication: PRODUCT USED FOR UNKNOWN INDICATION
     Dosage: 1 DF
     Route: 048
     Dates: start: 20180331
  3. ATAZANAVIR. [Concomitant]
     Active Substance: ATAZANAVIR

REACTIONS (1)
  - Viral load increased [Unknown]

NARRATIVE: CASE EVENT DATE: 20181115
